FAERS Safety Report 12437474 (Version 1)
Quarter: 2016Q2

REPORT INFORMATION
  Report Type: Spontaneous
  Country: US (occurrence: US)
  Receive Date: 20160606
  Receipt Date: 20160606
  Transmission Date: 20160815
  Serious: Yes (Other)
  Sender: FDA-Public Use
  Company Number: US-JNJFOC-20160526874

PATIENT
  Sex: Male

DRUGS (2)
  1. VISINE DROPS [Suspect]
     Active Substance: OXYMETAZOLINE HYDROCHLORIDE
     Route: 065
  2. VISINE DROPS [Suspect]
     Active Substance: OXYMETAZOLINE HYDROCHLORIDE
     Indication: PRODUCT USED FOR UNKNOWN INDICATION
     Route: 065

REACTIONS (2)
  - Eye disorder [Unknown]
  - Blindness [Unknown]
